FAERS Safety Report 15713211 (Version 1)
Quarter: 2018Q4

REPORT INFORMATION
  Report Type: Spontaneous
  Country: SE (occurrence: SE)
  Receive Date: 20181212
  Receipt Date: 20181212
  Transmission Date: 20190205
  Serious: Yes (Other)
  Sender: FDA-Public Use
  Company Number: SE-TEVA-2018-SE-986003

PATIENT
  Age: 66 Year
  Sex: Female

DRUGS (5)
  1. CYCLOPHOSPHAMIDE (ANHYDROUS) [Concomitant]
     Active Substance: CYCLOPHOSPHAMIDE
  2. DEXAMETHASONE. [Concomitant]
     Active Substance: DEXAMETHASONE
  3. SIMVASTATIN. [Concomitant]
     Active Substance: SIMVASTATIN
  4. VELCADE [Concomitant]
     Active Substance: BORTEZOMIB
  5. ZOLEDRONSYRA (ZOLEDRONIC ACID) [Suspect]
     Active Substance: ZOLEDRONIC ACID
     Indication: OSTEOPOROSIS PROPHYLAXIS
     Route: 042
     Dates: start: 20181008, end: 20181113

REACTIONS (1)
  - Iridocyclitis [Not Recovered/Not Resolved]

NARRATIVE: CASE EVENT DATE: 20181104
